FAERS Safety Report 8221529-4 (Version None)
Quarter: 2012Q1

REPORT INFORMATION
  Report Type: 
  Country: None (occurrence: None)
  Receive Date: 20120320
  Receipt Date: 20120314
  Transmission Date: 20120608
  Serious: Yes (Other)
  Sender: FDA-Public Use
  Company Number: US-PFIZER INC-2012068116

PATIENT
  Sex: Female
  Weight: 77.1 kg

DRUGS (5)
  1. LYRICA [Concomitant]
     Indication: NEURALGIA
     Dosage: 75 MG, 2X/DAY
  2. PREMARIN [Suspect]
     Dosage: UNK,DAILY
     Route: 067
     Dates: start: 20120224
  3. PROMETHAZINE [Concomitant]
     Indication: NAUSEA
     Dosage: UNK,EVERY 8 HOUR
  4. PROMETHAZINE [Concomitant]
     Indication: VOMITING
  5. AMBIEN [Concomitant]
     Indication: SLEEP DISORDER
     Dosage: UNK, AS NEEDED

REACTIONS (1)
  - URINARY TRACT INFECTION [None]
